FAERS Safety Report 6110959-2 (Version None)
Quarter: 2009Q1

REPORT INFORMATION
  Report Type: 
  Country: None (occurrence: None)
  Receive Date: 20090311
  Receipt Date: 20080220
  Transmission Date: 20090719
  Serious: No
  Sender: FDA-Public Use
  Company Number: US-KINGPHARMUSA00001-K200800231

PATIENT
  Age: 66 Year
  Sex: Male

DRUGS (4)
  1. ALTACE [Suspect]
     Indication: HYPERTENSION
     Dosage: 10 MG, QD AT BEDTIME
     Route: 048
  2. ALTACE [Suspect]
     Dosage: 10 MG, BID (MORNING AND BEDTIME)
     Route: 048
  3. UNSPECIFIED ANTI-ANXIETY MEDICATION [Concomitant]
     Indication: ANXIETY
  4. UNSPECIFIED ANTI-ANXIETY MEDICATION [Concomitant]
     Indication: SLEEP DISORDER

REACTIONS (1)
  - BLOOD PRESSURE INCREASED [None]
